FAERS Safety Report 12783255 (Version 1)
Quarter: 2016Q3

REPORT INFORMATION
  Report Type: Spontaneous
  Country: US (occurrence: US)
  Receive Date: 20160927
  Receipt Date: 20160927
  Transmission Date: 20161109
  Serious: No
  Sender: FDA-Public Use
  Company Number: None

PATIENT
  Age: 30 Year
  Sex: Male
  Weight: 128.25 kg

DRUGS (5)
  1. FISH OIL [Concomitant]
     Active Substance: FISH OIL
  2. MAGNESIUM [Concomitant]
     Active Substance: MAGNESIUM
  3. MULTI [Concomitant]
  4. VITAMIN D3 [Concomitant]
     Active Substance: CHOLECALCIFEROL
  5. VYVANSE [Suspect]
     Active Substance: LISDEXAMFETAMINE DIMESYLATE
     Indication: ATTENTION DEFICIT/HYPERACTIVITY DISORDER
     Route: 048
     Dates: start: 20160919, end: 20160926

REACTIONS (5)
  - Aphasia [None]
  - Incoherent [None]
  - Feeling abnormal [None]
  - Amnesia [None]
  - Confusional state [None]

NARRATIVE: CASE EVENT DATE: 20160926
